FAERS Safety Report 17514668 (Version 2)
Quarter: 2020Q3

REPORT INFORMATION
  Report Type: Other
  Country: GB (occurrence: GB)
  Receive Date: 20200309
  Receipt Date: 20200907
  Transmission Date: 20201102
  Serious: Yes (Hospitalization, Other)
  Sender: FDA-Public Use
  Company Number: GB-ROCHE-2264586

PATIENT
  Sex: Female

DRUGS (2)
  1. OCREVUS [Suspect]
     Active Substance: OCRELIZUMAB
     Indication: RELAPSING-REMITTING MULTIPLE SCLEROSIS
     Route: 042
  2. OCREVUS [Suspect]
     Active Substance: OCRELIZUMAB
     Dosage: CYCLE 3
     Route: 041

REACTIONS (16)
  - Feeling hot [Unknown]
  - Headache [Unknown]
  - Pruritus [Unknown]
  - Depression [Unknown]
  - Throat irritation [Recovered/Resolved]
  - Heart rate increased [Recovered/Resolved]
  - Fatigue [Unknown]
  - Enteritis infectious [Unknown]
  - Malaise [Unknown]
  - Nausea [Unknown]
  - Hyperhidrosis [Unknown]
  - Skin discolouration [Unknown]
  - Tachycardia [Unknown]
  - Palpitations [Unknown]
  - Blood pressure increased [Recovered/Resolved]
  - Ear pruritus [Recovered/Resolved]
